FAERS Safety Report 22790231 (Version 3)
Quarter: 2023Q4

REPORT INFORMATION
  Report Type: Report from Study
  Country: US (occurrence: US)
  Receive Date: 20230805
  Receipt Date: 20231006
  Transmission Date: 20240110
  Serious: No
  Sender: FDA-Public Use
  Company Number: US-002147023-NVSC2023US168658

PATIENT
  Sex: Female
  Weight: 45.36 kg

DRUGS (1)
  1. TABRECTA [Suspect]
     Active Substance: CAPMATINIB
     Indication: Lung carcinoma cell type unspecified stage 0
     Dosage: 400 MG, BID
     Route: 048

REACTIONS (3)
  - Cough [Unknown]
  - Product use complaint [Unknown]
  - Incorrect dose administered [Unknown]
